FAERS Safety Report 11576207 (Version 1)
Quarter: 2015Q3

REPORT INFORMATION
  Report Type: Spontaneous
  Country: None (occurrence: GB)
  Receive Date: 20150930
  Receipt Date: 20150930
  Transmission Date: 20151125
  Serious: Yes (Other)
  Sender: FDA-Public Use
  Company Number: GB-MEDAC PHARMA, INC.-1042432

PATIENT
  Age: 68 Year
  Sex: Female

DRUGS (1)
  1. METOJECT [Suspect]
     Active Substance: METHOTREXATE SODIUM
     Indication: RHEUMATOID ARTHRITIS
     Dates: start: 20141204

REACTIONS (1)
  - Surgery [Recovered/Resolved]

NARRATIVE: CASE EVENT DATE: 20150814
